FAERS Safety Report 9568801 (Version 1)
Quarter: 2013Q3

REPORT INFORMATION
  Report Type: Spontaneous
  Country: US (occurrence: US)
  Receive Date: 20130930
  Receipt Date: 20130930
  Transmission Date: 20140515
  Serious: No
  Sender: FDA-Public Use
  Company Number: US-AMGEN-USASP2013060711

PATIENT
  Age: 40 Year
  Sex: Female
  Weight: 95.24 kg

DRUGS (7)
  1. ENBREL [Suspect]
     Indication: RHEUMATOID ARTHRITIS
     Dosage: 50 MG, QWK
     Route: 058
  2. METHOTREXATE [Concomitant]
     Dosage: 2.5 MG, UNK
  3. PREDNISONE [Concomitant]
     Dosage: 2.5 MG, UNK
  4. SYNTHROID [Concomitant]
     Dosage: 125 MUG, UNK
  5. LISINOPRIL HCTZ [Concomitant]
     Dosage: 20-12.5
  6. FOLIC ACID [Concomitant]
     Dosage: 400 MUG, UNK
  7. FISH OIL [Concomitant]
     Dosage: UNK

REACTIONS (4)
  - Wrong technique in drug usage process [Unknown]
  - Nausea [Recovered/Resolved]
  - Injection site discomfort [Unknown]
  - Injection site pain [Unknown]
